FAERS Safety Report 17028652 (Version 1)
Quarter: 2019Q4

REPORT INFORMATION
  Report Type: Report from Study
  Country: None (occurrence: DE)
  Receive Date: 20191113
  Receipt Date: 20191113
  Transmission Date: 20200122
  Serious: Yes (Hospitalization)
  Sender: FDA-Public Use
  Company Number: DE-ABBVIE-19K-062-2913597-00

PATIENT
  Age: 50 Year
  Sex: Male
  Weight: 128 kg

DRUGS (3)
  1. HUMIRA [Suspect]
     Active Substance: ADALIMUMAB
     Indication: HIDRADENITIS
     Route: 058
     Dates: start: 201707
  2. CANDESARTAN. [Concomitant]
     Active Substance: CANDESARTAN
     Indication: HYPERTENSION
     Route: 048
  3. HUMIRA [Suspect]
     Active Substance: ADALIMUMAB
     Indication: HIDRADENITIS

REACTIONS (6)
  - Scar [Recovering/Resolving]
  - Irritability [Not Recovered/Not Resolved]
  - Incision site inflammation [Recovering/Resolving]
  - Abscess limb [Recovering/Resolving]
  - Headache [Not Recovered/Not Resolved]
  - Incision site swelling [Recovering/Resolving]

NARRATIVE: CASE EVENT DATE: 20190601
